FAERS Safety Report 5712992-9 (Version None)
Quarter: 2008Q2

REPORT INFORMATION
  Report Type: 
  Country: None (occurrence: None)
  Receive Date: 20080418
  Receipt Date: 20080411
  Transmission Date: 20081010
  Serious: Yes (Death, Other)
  Sender: FDA-Public Use
  Company Number: 066-C5013-07031124

PATIENT
  Age: 70 Year
  Sex: Female

DRUGS (7)
  1. CC-5013 (LENALIDOMIDE) (CAPSULES) [Suspect]
     Indication: MULTIPLE MYELOMA
     Dosage: DAILY, ORAL; 25 MG, DAILY, ORAL
     Route: 048
     Dates: start: 20061201, end: 20070101
  2. CC-5013 (LENALIDOMIDE) (CAPSULES) [Suspect]
     Indication: MULTIPLE MYELOMA
     Dosage: DAILY, ORAL; 25 MG, DAILY, ORAL
     Route: 048
     Dates: start: 20070130, end: 20070101
  3. DEXETON [Concomitant]
  4. EPO (EPOETIN ALFA) [Concomitant]
  5. ZIREK (CETIRIZINE HYDROCHLORIDE) [Concomitant]
  6. IRON (IRON) [Concomitant]
  7. NEULASTA [Concomitant]

REACTIONS (3)
  - DISEASE PROGRESSION [None]
  - HYPERCALCAEMIA [None]
  - PYREXIA [None]
